FAERS Safety Report 23764952 (Version 2)
Quarter: 2024Q2

REPORT INFORMATION
  Report Type: Spontaneous
  Country: US (occurrence: US)
  Receive Date: 20240420
  Receipt Date: 20240607
  Transmission Date: 20240715
  Serious: Yes (Other)
  Sender: FDA-Public Use
  Company Number: US-ABBVIE-5726996

PATIENT
  Age: 22 Year
  Sex: Female

DRUGS (2)
  1. LILETTA [Suspect]
     Active Substance: LEVONORGESTREL
     Indication: Contraception
     Dosage: TIME INTERVAL: AS NECESSARY: FORM STRENGTH WAS 52 MILLIGRAM
     Route: 015
     Dates: start: 20230328, end: 20240418
  2. LILETTA [Suspect]
     Active Substance: LEVONORGESTREL
     Dosage: TIME INTERVAL: AS NECESSARY: FORM STRENGTH WAS 52 MILLIGRAM
     Route: 015
     Dates: start: 20240418

REACTIONS (5)
  - Device dislocation [Unknown]
  - Device expulsion [Unknown]
  - Therapeutic product effect incomplete [Unknown]
  - Uterine perforation [Unknown]
  - Device expulsion [Recovered/Resolved]

NARRATIVE: CASE EVENT DATE: 20240401
